FAERS Safety Report 7796216-7 (Version None)
Quarter: 2011Q4

REPORT INFORMATION
  Report Type: 
  Country: None (occurrence: None)
  Receive Date: 20111004
  Receipt Date: 20110928
  Transmission Date: 20120403
  Serious: Yes (Hospitalization)
  Sender: FDA-Public Use
  Company Number: FR-GILEAD-2011-0044480

PATIENT

DRUGS (6)
  1. TRUVADA [Suspect]
     Indication: HIV INFECTION
     Dosage: 200 MG, QD
     Route: 048
     Dates: start: 20101201
  2. PREZISTA                           /05513802/ [Suspect]
     Dosage: 1 DF, QD
     Route: 048
     Dates: start: 20110513, end: 20110813
  3. REYATAZ [Suspect]
     Dosage: 200 MG, QD
     Route: 048
     Dates: start: 20110813
  4. NORVIR [Suspect]
     Dosage: 1 DF, QD
     Route: 048
     Dates: start: 20110513, end: 20110813
  5. ISENTRESS [Concomitant]
  6. DESMODIUM [Concomitant]

REACTIONS (2)
  - HAEMATOMA [None]
  - CONDITION AGGRAVATED [None]
